FAERS Safety Report 23515901 (Version 8)
Quarter: 2024Q2

REPORT INFORMATION
  Report Type: Other
  Country: CA (occurrence: None)
  Receive Date: 20240213
  Receipt Date: 20240503
  Transmission Date: 20240716
  Serious: Yes (Other)
  Sender: FDA-Public Use
  Company Number: CA-ROCHE-2526613

PATIENT
  Age: 56 Year
  Sex: Female

DRUGS (5)
  1. OCREVUS [Suspect]
     Active Substance: OCRELIZUMAB
     Indication: Relapsing-remitting multiple sclerosis
     Dosage: 300 MG AT DAY 0 AND 14, THEN 600 MG EVERY 6 MONTH
     Route: 042
     Dates: start: 20190708
  2. ZOPICLONE [Concomitant]
     Active Substance: ZOPICLONE
     Dosage: 7.5 MG AT BED TIME
  3. BACLOFEN [Concomitant]
     Active Substance: BACLOFEN
  4. TAMOXIFEN [Concomitant]
     Active Substance: TAMOXIFEN
  5. TYLENOL [Concomitant]
     Active Substance: ACETAMINOPHEN

REACTIONS (10)
  - Cataract [Unknown]
  - Retinal tear [Recovered/Resolved]
  - Eye haemorrhage [Recovered/Resolved]
  - Rash [Unknown]
  - Dizziness [Unknown]
  - Muscle spasticity [Unknown]
  - Fungal infection [Recovered/Resolved]
  - Depression [Unknown]
  - Memory impairment [Not Recovered/Not Resolved]
  - Muscle spasms [Not Recovered/Not Resolved]

NARRATIVE: CASE EVENT DATE: 20200501
